FAERS Safety Report 4481165-2 (Version None)
Quarter: 2004Q4

REPORT INFORMATION
  Report Type: 
  Country: None (occurrence: None)
  Receive Date: 20041021
  Receipt Date: 20041012
  Transmission Date: 20050328
  Serious: Yes (Life-Threatening)
  Sender: FDA-Public Use
  Company Number: US-MERCK-0410USA01834

PATIENT
  Age: 38 Year
  Sex: Male

DRUGS (1)
  1. VIOXX [Suspect]
     Indication: CLUSTER HEADACHE
     Route: 048
     Dates: start: 19990101, end: 20040901

REACTIONS (3)
  - CARDIAC DISORDER [None]
  - DYSPNOEA [None]
  - HEART RATE INCREASED [None]
